FAERS Safety Report 26207247 (Version 1)
Quarter: 2025Q4

REPORT INFORMATION
  Report Type: Spontaneous
  Country: AU (occurrence: AU)
  Receive Date: 20251229
  Receipt Date: 20251229
  Transmission Date: 20260117
  Serious: Yes (Death, Hospitalization)
  Sender: AMGEN
  Company Number: AU-AMGEN-AUSSP2025254505

PATIENT
  Age: 87 Year
  Sex: Female

DRUGS (9)
  1. ETANERCEPT [Suspect]
     Active Substance: ETANERCEPT
     Indication: Toxic epidermal necrolysis
     Dosage: 50 MILLIGRAM
     Route: 065
  2. ETANERCEPT [Suspect]
     Active Substance: ETANERCEPT
     Indication: Stevens-Johnson syndrome
  3. ETANERCEPT [Suspect]
     Active Substance: ETANERCEPT
     Indication: Off label use
  4. PREDNISOLONE [Concomitant]
     Active Substance: PREDNISOLONE
     Indication: Toxic epidermal necrolysis
     Dosage: 25 MILLIGRAM, BID
     Route: 048
  5. PREDNISOLONE [Concomitant]
     Active Substance: PREDNISOLONE
     Indication: Stevens-Johnson syndrome
  6. HYDROCORTISONE [Concomitant]
     Active Substance: HYDROCORTISONE
     Indication: Toxic epidermal necrolysis
     Dosage: 100 MILLIGRAM
     Route: 048
  7. HYDROCORTISONE [Concomitant]
     Active Substance: HYDROCORTISONE
     Indication: Stevens-Johnson syndrome
  8. RELATLIMAB [Concomitant]
     Active Substance: RELATLIMAB
     Indication: Gastrointestinal melanoma
     Dosage: UNK
  9. NIVOLUMAB [Concomitant]
     Active Substance: NIVOLUMAB
     Indication: Gastrointestinal melanoma
     Dosage: UNK

REACTIONS (6)
  - Stevens-Johnson syndrome [Fatal]
  - Toxic epidermal necrolysis [Fatal]
  - Gastric haemorrhage [Fatal]
  - Leukopenia [Fatal]
  - Acute kidney injury [Fatal]
  - Off label use [Unknown]
